FAERS Safety Report 9830881 (Version 1)
Quarter: 2014Q1

REPORT INFORMATION
  Report Type: Spontaneous
  Country: US (occurrence: US)
  Receive Date: 20140120
  Receipt Date: 20140120
  Transmission Date: 20141002
  Serious: No
  Sender: FDA-Public Use
  Company Number: US-009507513-1401USA004731

PATIENT
  Sex: Female

DRUGS (1)
  1. MAXALT [Suspect]
     Indication: MIGRAINE
     Dosage: 10 MG, QD AS NEEDED
     Route: 048
     Dates: start: 2009

REACTIONS (1)
  - Skin sensitisation [Unknown]
